FAERS Safety Report 23888125 (Version 6)
Quarter: 2024Q4

REPORT INFORMATION
  Report Type: Spontaneous
  Country: CA (occurrence: CA)
  Receive Date: 20240523
  Receipt Date: 20241107
  Transmission Date: 20250115
  Serious: Yes (Other)
  Sender: CELLTRION
  Company Number: CA-PFIZER INC-202300276633

PATIENT

DRUGS (13)
  1. INFLECTRA [Suspect]
     Active Substance: INFLIXIMAB-DYYB
     Indication: Crohn^s disease
     Dosage: 1200 MG, W0, W2, W6 AND THEN EVERY 8 WEEKS (10MG/KG)
     Route: 042
     Dates: start: 20231016
  2. INFLECTRA [Suspect]
     Active Substance: INFLIXIMAB-DYYB
     Dosage: 1200 MG, W0, W2, W6 AND THEN EVERY 8 WEEKS
     Route: 042
     Dates: start: 20231030
  3. INFLECTRA [Suspect]
     Active Substance: INFLIXIMAB-DYYB
     Dosage: 1200 MG, W0, W2, W6 AND THEN EVERY 8 WEEKS (AFTER 4 WEEKS)
     Route: 042
     Dates: start: 20231127
  4. INFLECTRA [Suspect]
     Active Substance: INFLIXIMAB-DYYB
     Dosage: 1200 MG, EVERY 8 WEEKS
     Route: 042
     Dates: start: 20240123
  5. INFLECTRA [Suspect]
     Active Substance: INFLIXIMAB-DYYB
     Dosage: 1200 MG, EVERY 8 WEEKS
     Route: 042
     Dates: start: 20240123
  6. INFLECTRA [Suspect]
     Active Substance: INFLIXIMAB-DYYB
     Dosage: 1200 MG, EVERY 8 WEEKS
     Route: 042
     Dates: start: 20240319, end: 20240319
  7. INFLECTRA [Suspect]
     Active Substance: INFLIXIMAB-DYYB
     Dosage: 1200 MG, EVERY 8 WEEKS
     Route: 042
     Dates: start: 20240319, end: 20240319
  8. INFLECTRA [Suspect]
     Active Substance: INFLIXIMAB-DYYB
     Dosage: 1200 MG, EVERY 8 WEEKS
     Route: 042
     Dates: start: 20240514, end: 20240514
  9. INFLECTRA [Suspect]
     Active Substance: INFLIXIMAB-DYYB
     Dosage: 1200 MG, EVERY 8 WEEKS
     Route: 042
     Dates: start: 20240514, end: 20240514
  10. INFLECTRA [Suspect]
     Active Substance: INFLIXIMAB-DYYB
     Dosage: 1200 MG, EVERY 8 WEEKS
     Route: 042
     Dates: start: 20240709
  11. INFLECTRA [Suspect]
     Active Substance: INFLIXIMAB-DYYB
     Dosage: 1200 MG, EVERY 8 WEEKS (W0, W2, W6 AND THEN EVERY 8 WEEKS)
     Route: 042
     Dates: start: 20240709
  12. INFLECTRA [Suspect]
     Active Substance: INFLIXIMAB-DYYB
     Dosage: 1300 MG, EVERY 8 WEEKS
     Route: 042
     Dates: start: 20240905
  13. INFLECTRA [Suspect]
     Active Substance: INFLIXIMAB-DYYB
     Dosage: 1300 MG, EVERY 8 WEEKS (1300 MG, EVERY 8 WEEKS)
     Route: 042
     Dates: start: 20241029

REACTIONS (16)
  - Pyoderma gangrenosum [Recovered/Resolved]
  - Uveitis [Recovered/Resolved]
  - Blood pressure increased [Unknown]
  - Condition aggravated [Recovering/Resolving]
  - Abdominal distension [Not Recovered/Not Resolved]
  - Arthralgia [Not Recovered/Not Resolved]
  - Anal fissure [Recovered/Resolved]
  - Abscess [Recovered/Resolved]
  - Erythema nodosum [Recovered/Resolved]
  - Fistula [Recovered/Resolved]
  - Anxiety [Unknown]
  - Aphthous ulcer [Recovered/Resolved]
  - Off label use [Unknown]
  - Off label use [Unknown]
  - Intentional product use issue [Unknown]
  - Defaecation urgency [Not Recovered/Not Resolved]

NARRATIVE: CASE EVENT DATE: 20230101
